FAERS Safety Report 22100428 (Version 1)
Quarter: 2023Q1

REPORT INFORMATION
  Report Type: Spontaneous
  Country: US (occurrence: US)
  Receive Date: 20230316
  Receipt Date: 20230316
  Transmission Date: 20230417
  Serious: No
  Sender: FDA-Public Use
  Company Number: US-BAUSCHBL-2023BNL001969

PATIENT
  Age: 65 Year
  Sex: Female

DRUGS (2)
  1. ALAWAY [Suspect]
     Active Substance: KETOTIFEN FUMARATE
     Indication: Eye allergy
     Dosage: AS NEEDED
     Route: 047
     Dates: start: 202301, end: 20230307
  2. RESTASIS [Concomitant]
     Active Substance: CYCLOSPORINE
     Indication: Product used for unknown indication
     Dosage: AS DIRECTED
     Route: 047

REACTIONS (2)
  - Instillation site irritation [Recovered/Resolved]
  - Expired product administered [Unknown]
